FAERS Safety Report 8177474-6 (Version None)
Quarter: 2012Q1

REPORT INFORMATION
  Report Type: 
  Country: None (occurrence: None)
  Receive Date: 20120301
  Receipt Date: 20120223
  Transmission Date: 20120608
  Serious: Yes (Hospitalization)
  Sender: FDA-Public Use
  Company Number: US-ACTELION-A-NJ2012-60787

PATIENT

DRUGS (15)
  1. VENTAVIS [Suspect]
     Indication: PULMONARY ARTERIAL HYPERTENSION
     Dosage: 2.5 ?G, 6 TIMES DAILY
     Route: 055
     Dates: start: 20120201, end: 20120202
  2. SIMVASTATIN [Concomitant]
  3. XALATAN [Concomitant]
  4. PREDNISONE [Concomitant]
  5. OMEPRAZOLE [Concomitant]
  6. VENTAVIS [Suspect]
     Dosage: UNK
     Route: 055
     Dates: start: 20120201
  7. ADCIRCA [Concomitant]
  8. BETAMETHASONE W/CLOTRIMAZOLE [Concomitant]
  9. ASPIRIN [Concomitant]
  10. BRIMONIDINE TARTRATE [Concomitant]
  11. PROVENTIL [Concomitant]
  12. DIOVAN [Concomitant]
  13. TRACLEER [Suspect]
     Indication: PULMONARY ARTERIAL HYPERTENSION
     Dosage: UNK
     Route: 048
     Dates: start: 20120123
  14. TRUSOPT [Concomitant]
  15. SYMBICORT [Concomitant]

REACTIONS (10)
  - DYSPNOEA [None]
  - WHEEZING [None]
  - DRUG DOSE OMISSION [None]
  - ASTHMA [None]
  - ABDOMINAL PAIN [None]
  - CHEST DISCOMFORT [None]
  - FLATULENCE [None]
  - DIZZINESS [None]
  - CHRONIC OBSTRUCTIVE PULMONARY DISEASE [None]
  - HEADACHE [None]
